FAERS Safety Report 9415538 (Version 1)
Quarter: 2013Q3

REPORT INFORMATION
  Report Type: Spontaneous
  Country: ZA (occurrence: ZA)
  Receive Date: 20130723
  Receipt Date: 20130723
  Transmission Date: 20140515
  Serious: Yes (Hospitalization)
  Sender: FDA-Public Use
  Company Number: ZA-ASTRAZENECA-2013SE54944

PATIENT
  Age: 4 Month
  Sex: Female

DRUGS (1)
  1. SYNAGIS [Suspect]
     Dosage: 0.3 ML
     Route: 030
     Dates: start: 20130702, end: 20130702

REACTIONS (3)
  - Injection site abscess [Unknown]
  - Fracture [Unknown]
  - Osteomyelitis [Unknown]
